FAERS Safety Report 16687595 (Version 1)
Quarter: 2019Q3

REPORT INFORMATION
  Report Type: Spontaneous
  Country: US (occurrence: US)
  Receive Date: 20190624
  Receipt Date: 20190624
  Transmission Date: 20191004
  Serious: No
  Sender: FDA-Public Use
  Company Number: None

PATIENT
  Age: 56 Year
  Sex: Male

DRUGS (25)
  1. OMEPRAZOLE CAP [Concomitant]
     Active Substance: OMEPRAZOLE SODIUM
  2. AZITHROMYCIN TAB [Concomitant]
  3. BACTRIM TAB [Concomitant]
  4. CAYSTON INH [Concomitant]
  5. CRESTOR TAB [Concomitant]
  6. VALCYTE TAB [Concomitant]
  7. BIOTIN TAB [Concomitant]
  8. NOVOLOG INJ [Concomitant]
  9. NOXAFIL SUS [Concomitant]
  10. STERILE INJ WATER [Concomitant]
  11. CARVEDILOL TAB [Concomitant]
     Active Substance: CARVEDILOL
  12. KALYDECO TAB [Concomitant]
  13. LOVAZA CAP [Concomitant]
  14. MYCOPHENOLAT CAP [Concomitant]
     Active Substance: MYCOPHENOLATE MOFETIL
  15. DUCASATE SOD CAP [Concomitant]
  16. CALCIUM TAB [Concomitant]
  17. CLONIDINE TAB [Concomitant]
  18. LANTUS SOLOS IN [Concomitant]
  19. MELATONIN TAB [Concomitant]
  20. PREDINISONE TAB [Concomitant]
  21. PROAIR HFA AER [Concomitant]
  22. KALYDECO [Suspect]
     Active Substance: IVACAFTOR
     Indication: CYSTIC FIBROSIS
     Route: 048
     Dates: start: 20190322
  23. COLISTIMETH INJ [Concomitant]
  24. VITAMIN B-12 TAB [Concomitant]
  25. MAG OXIDE TAB [Concomitant]

REACTIONS (1)
  - Tumour excision [None]

NARRATIVE: CASE EVENT DATE: 20190604
